FAERS Safety Report 16186984 (Version 1)
Quarter: 2019Q2

REPORT INFORMATION
  Report Type: Spontaneous
  Country: NL (occurrence: NL)
  Receive Date: 20190411
  Receipt Date: 20190411
  Transmission Date: 20190711
  Serious: Yes (Hospitalization)
  Sender: FDA-Public Use
  Company Number: NL-AMGEN-NLDSP2019054569

PATIENT
  Age: 54 Year
  Sex: Female
  Weight: 60 kg

DRUGS (17)
  1. AMITRIPTYLINE [Concomitant]
     Active Substance: AMITRIPTYLINE
     Dosage: 25 MILLIGRAM, QD
  2. LEVOCABASTINE [Concomitant]
     Active Substance: LEVOCABASTINE
     Dosage: 0.5 MILLIGRAM PER MILLILITRE, Q12H
  3. OXYCODON [Concomitant]
     Active Substance: OXYCODONE
     Dosage: 5 MILLIGRAM, Q12H
  4. COLEX [SODIUM PHOSPHATE DIBASIC;SODIUM PHOSPHATE MONOBASIC] [Concomitant]
     Dosage: UNK
  5. MACROGOL [Concomitant]
     Active Substance: POLYETHYLENE GLYCOLS
     Dosage: 1 DF, Q12H
  6. SALBUTAMOL [Concomitant]
     Active Substance: ALBUTEROL
     Dosage: 1 DF, Q8H
  7. AMGEVITA [Suspect]
     Active Substance: ADALIMUMAB
     Indication: CROHN^S DISEASE
     Dosage: 40 MILLIGRAM, Q2WK
     Route: 058
     Dates: start: 20171213, end: 20190202
  8. VALPROIC ACID. [Concomitant]
     Active Substance: VALPROIC ACID
     Dosage: 1500 MILLIGRAM, Q12H
  9. LEVETIRACETAM. [Concomitant]
     Active Substance: LEVETIRACETAM
     Dosage: 500 MILLIGRAM, Q12H
  10. MIDAZOLAM [Concomitant]
     Active Substance: MIDAZOLAM HYDROCHLORIDE
     Dosage: 10 MILLIGRAM, QD
  11. PAROXETINE. [Concomitant]
     Active Substance: PAROXETINE
     Dosage: 20 MILLIGRAM, QD
  12. METOCLOPRAMIDE. [Concomitant]
     Active Substance: METOCLOPRAMIDE
     Dosage: 10 MILLIGRAM
  13. CALCIUM CARBONATE W/COLECALCIFEROL [Concomitant]
     Active Substance: CALCIUM CARBONATE\CHOLECALCIFEROL
     Dosage: 1.25 GRAM/ 800 IE
  14. BISACODYL. [Concomitant]
     Active Substance: BISACODYL
     Dosage: 5 MILLIGRAM
  15. CETIRIZINE [Concomitant]
     Active Substance: CETIRIZINE HYDROCHLORIDE
     Dosage: 10 MILLIGRAM, QD
  16. PARACETAMOL [Concomitant]
     Active Substance: ACETAMINOPHEN
     Dosage: 1000 MILLIGRAM, Q6H
  17. OMEPRAZOL [OMEPRAZOLE] [Concomitant]
     Dosage: 40 MILLIGRAM, Q12H

REACTIONS (2)
  - Epilepsy [Recovered/Resolved]
  - Therapeutic response unexpected [Recovered/Resolved]

NARRATIVE: CASE EVENT DATE: 20190119
